FAERS Safety Report 12652653 (Version 1)
Quarter: 2016Q3

REPORT INFORMATION
  Report Type: Spontaneous
  Country: US (occurrence: US)
  Receive Date: 20160815
  Receipt Date: 20160815
  Transmission Date: 20161109
  Serious: Yes (Hospitalization, Other)
  Sender: FDA-Public Use
  Company Number: US-SA-2016SA145807

PATIENT
  Age: 75 Year
  Sex: Female

DRUGS (3)
  1. VICTOZA [Concomitant]
     Active Substance: LIRAGLUTIDE
  2. LANTUS SOLOSTAR [Suspect]
     Active Substance: INSULIN GLARGINE
     Indication: TYPE 2 DIABETES MELLITUS
     Dosage: DOSE:25 UNIT(S)
     Route: 065
     Dates: start: 2007
  3. SOLOSTAR [Concomitant]
     Active Substance: DEVICE
     Indication: TYPE 2 DIABETES MELLITUS
     Dates: start: 2007

REACTIONS (7)
  - Diabetic retinopathy [Unknown]
  - Pneumonia [Unknown]
  - Gait disturbance [Unknown]
  - Fall [Unknown]
  - Fractured coccyx [Unknown]
  - Balance disorder [Not Recovered/Not Resolved]
  - Dysgraphia [Recovering/Resolving]

NARRATIVE: CASE EVENT DATE: 2013
